FAERS Safety Report 15256110 (Version 1)
Quarter: 2018Q3

REPORT INFORMATION
  Report Type: Spontaneous
  Country: US (occurrence: US)
  Receive Date: 20180718
  Receipt Date: 20180718
  Transmission Date: 20181010
  Serious: Yes (Hospitalization)
  Sender: FDA-Public Use
  Company Number: None

PATIENT
  Age: 66 Year
  Sex: Male

DRUGS (1)
  1. TACROLIMUS CAP 0.5MG [Suspect]
     Active Substance: TACROLIMUS
     Route: 048

REACTIONS (3)
  - Hypomagnesaemia [None]
  - Factor V Leiden mutation [None]
  - Incorrect dose administered [None]

NARRATIVE: CASE EVENT DATE: 20180718
